FAERS Safety Report 9040911 (Version 5)
Quarter: 2014Q2

REPORT INFORMATION
  Report Type: Spontaneous
  Country: US (occurrence: US)
  Receive Date: 20130129
  Receipt Date: 20140404
  Transmission Date: 20141212
  Serious: Yes (Hospitalization, Other)
  Sender: FDA-Public Use
  Company Number: US-009507513-1206USA04847

PATIENT
  Sex: Female
  Weight: 74.83 kg

DRUGS (5)
  1. FOSAMAX [Suspect]
     Dosage: UNK UNK, QW
     Route: 048
     Dates: start: 2002, end: 20101201
  2. ALENDRONATE SODIUM [Suspect]
     Dosage: 70 MG, QW
     Route: 048
  3. ACTONEL [Concomitant]
     Indication: OSTEOARTHRITIS
     Dosage: UNK
     Dates: end: 2002
  4. ACTONEL [Concomitant]
     Indication: OSTEOPENIA
  5. MELOXICAM [Concomitant]
     Indication: OSTEOARTHRITIS
     Dosage: UNK
     Dates: start: 2010

REACTIONS (37)
  - Femur fracture [Unknown]
  - Intramedullary rod insertion [Unknown]
  - Fall [Unknown]
  - Femur fracture [Unknown]
  - Rotator cuff repair [Unknown]
  - Osteonecrosis [Unknown]
  - Limb operation [Unknown]
  - Low turnover osteopathy [Unknown]
  - Lumbar spinal stenosis [Unknown]
  - Cardiac murmur functional [Unknown]
  - Haemorrhoids [Unknown]
  - Haemorrhagic anaemia [Unknown]
  - Diverticulum [Unknown]
  - Hyperlipidaemia [Unknown]
  - Hypertriglyceridaemia [Unknown]
  - Sleep apnoea syndrome [Unknown]
  - Breast calcifications [Unknown]
  - Breast fibrosis [Recovered/Resolved]
  - Cervical cyst [Unknown]
  - Migraine [Unknown]
  - Lumbar radiculopathy [Recovering/Resolving]
  - Uterine stenosis [Unknown]
  - Temporomandibular joint syndrome [Unknown]
  - Rotator cuff syndrome [Unknown]
  - Arthroscopy [Unknown]
  - Bruxism [Unknown]
  - Laparoscopic surgery [Unknown]
  - Arthropathy [Unknown]
  - Vitamin D deficiency [Unknown]
  - Calcium deficiency [Unknown]
  - Intervertebral disc protrusion [Unknown]
  - Adverse event [Unknown]
  - Adverse event [Unknown]
  - Arthralgia [Unknown]
  - Constipation [Unknown]
  - Off label use [Unknown]
  - Back pain [Unknown]
